FAERS Safety Report 9643441 (Version 2)
Quarter: 2013Q4

REPORT INFORMATION
  Report Type: Spontaneous
  Country: US (occurrence: US)
  Receive Date: 20131024
  Receipt Date: 20131024
  Transmission Date: 20140711
  Serious: Yes (Hospitalization, Other)
  Sender: FDA-Public Use
  Company Number: US-SA-FABR-1003233

PATIENT
  Age: 52 Year
  Sex: Female
  Weight: 70.3 kg

DRUGS (9)
  1. FABRAZYME [Suspect]
     Indication: FABRY^S DISEASE
     Dosage: 70 (1 MG/KG), Q2W
     Route: 042
     Dates: start: 200503
  2. PARACETAMOL [Concomitant]
     Indication: PREMEDICATION
     Dosage: UNK
  3. ACETYLSALICYLIC ACID [Concomitant]
     Dosage: UNK
  4. DULOXETINE HYDROCHLORIDE [Concomitant]
     Dosage: UNK
  5. GABAPENTIN [Concomitant]
     Dosage: UNK
  6. METOPROLOL [Concomitant]
     Dosage: UNK
  7. NICOTINE [Concomitant]
     Dosage: UNK (PATCH)
  8. SIMVASTATIN [Concomitant]
     Dosage: UNK
  9. TRAMADOL HYDROCHLORIDE [Concomitant]
     Dosage: UNK

REACTIONS (5)
  - Chronic obstructive pulmonary disease [Not Recovered/Not Resolved]
  - Troponin increased [Recovered/Resolved]
  - Bronchitis [Recovered/Resolved]
  - Haemoptysis [Recovered/Resolved]
  - Hypoxia [Recovered/Resolved]
